FAERS Safety Report 9288812 (Version 1)
Quarter: 2013Q2

REPORT INFORMATION
  Report Type: Spontaneous
  Country: DE (occurrence: DE)
  Receive Date: 20130514
  Receipt Date: 20130514
  Transmission Date: 20140414
  Serious: Yes (Death, Hospitalization)
  Sender: FDA-Public Use
  Company Number: DE-TEVA-403736GER

PATIENT
  Sex: Male

DRUGS (17)
  1. DOXORUBICIN [Suspect]
     Indication: B-CELL LYMPHOMA
     Route: 042
     Dates: start: 20130321
  2. PREDNISONE [Suspect]
     Indication: B-CELL LYMPHOMA
     Dosage: 100 MG , 6D/CYCLE
     Route: 048
     Dates: start: 20130321
  3. VINCRISTINE LIPOSOMAL [Suspect]
     Indication: B-CELL LYMPHOMA
     Route: 042
     Dates: start: 20130321
  4. CYCLOPHOSPHAMIDE [Suspect]
     Indication: B-CELL LYMPHOMA
     Route: 042
     Dates: start: 20130321
  5. RITUXIMAB [Suspect]
     Indication: B-CELL LYMPHOMA
     Route: 042
     Dates: start: 20130320
  6. PEGFILGRASTIM [Suspect]
     Indication: B-CELL LYMPHOMA
     Route: 058
     Dates: start: 20130326
  7. POTASSIUM SODIUM HYDROGEN CITRATE [Concomitant]
     Indication: HYPERURICAEMIA
     Dosage: 3 SPOONS
     Route: 048
     Dates: start: 20130321
  8. ACICLOVIR [Concomitant]
     Indication: PROPHYLAXIS
     Dosage: 1600 MILLIGRAM DAILY;
     Route: 048
  9. GRANISETRON [Concomitant]
     Indication: ANTIEMETIC SUPPORTIVE CARE
     Route: 042
     Dates: start: 20130321
  10. MESNA [Concomitant]
     Indication: PROPHYLAXIS
     Route: 048
  11. LEVOFLOXACIN [Concomitant]
     Indication: PROPHYLAXIS
     Dosage: 7D/CLYCLE
     Route: 048
  12. TORASEMIDE [Concomitant]
     Indication: RENAL FAILURE
     Dosage: 20/12.5 MG (1 IN 1D)
     Route: 048
  13. SOLIFENACIN [Concomitant]
     Indication: INCONTINENCE
     Dosage: 10 MILLIGRAM DAILY;
     Route: 048
  14. ISOPHAN-INSULIN [Concomitant]
     Indication: DIABETES MELLITUS
     Dosage: 20 IU (INTERNATIONAL UNIT) DAILY;
     Route: 058
  15. RIVAROXABAN [Concomitant]
     Indication: PROPHYLAXIS
     Dosage: 10 MILLIGRAM DAILY;
     Route: 048
  16. HYDROCHLOROTHIAZIDE/LISINOPRIL [Concomitant]
     Indication: HYPERTENSION
     Dosage: 20/12.5 MG EACH DAY
     Route: 048
  17. PANTOPRAZOL NATRIUM [Concomitant]
     Indication: PROPHYLAXIS
     Dosage: 40 MILLIGRAM DAILY;
     Dates: start: 20130322

REACTIONS (6)
  - Leukopenia [Fatal]
  - Febrile neutropenia [Fatal]
  - Pneumonia aspiration [Fatal]
  - General physical health deterioration [Recovered/Resolved]
  - Hyperglycaemia [Unknown]
  - Thrombocytopenia [Not Recovered/Not Resolved]
